FAERS Safety Report 8543328-6 (Version None)
Quarter: 2012Q3

REPORT INFORMATION
  Report Type: 
  Country: None (occurrence: None)
  Receive Date: 20120727
  Receipt Date: 20120719
  Transmission Date: 20120928
  Serious: Yes (Other)
  Sender: FDA-Public Use
  Company Number: US-US-EMD SERONO, INC.-7136956

PATIENT
  Sex: Female
  Weight: 66 kg

DRUGS (5)
  1. TYLENOL [Concomitant]
     Indication: PAIN
     Route: 048
  2. MULTI-VITAMIN [Concomitant]
     Indication: PRODUCT USED FOR UNKNOWN INDICATION
     Route: 048
  3. MIRENA [Concomitant]
     Indication: CONTRACEPTION
  4. LEXAPRO [Concomitant]
     Indication: DEPRESSION
     Route: 048
  5. REBIF [Suspect]
     Indication: MULTIPLE SCLEROSIS
     Route: 058
     Dates: start: 20110725

REACTIONS (1)
  - INJECTION SITE ABSCESS [None]
